FAERS Safety Report 8094791-9 (Version None)
Quarter: 2012Q1

REPORT INFORMATION
  Report Type: 
  Country: None (occurrence: None)
  Receive Date: 20120129
  Receipt Date: 20111211
  Transmission Date: 20120608
  Serious: No
  Sender: FDA-Public Use
  Company Number: US-ABBOTT-11P-163-0882546-00

PATIENT
  Age: 22 Year
  Sex: Female

DRUGS (3)
  1. HUMIRA [Suspect]
     Indication: PSORIASIS
     Dates: start: 20111119, end: 20111119
  2. HUMIRA [Suspect]
     Dates: start: 20111127, end: 20111127
  3. HUMIRA [Suspect]

REACTIONS (1)
  - THERMAL BURN [None]
